FAERS Safety Report 6239047-1 (Version None)
Quarter: 2009Q2

REPORT INFORMATION
  Report Type: 
  Country: None (occurrence: None)
  Receive Date: 20090622
  Receipt Date: 20090616
  Transmission Date: 20091009
  Serious: Yes (Other)
  Sender: FDA-Public Use
  Company Number: PHHY2009JP22716

PATIENT
  Age: 76 Year
  Sex: Male

DRUGS (1)
  1. VOLTAREN [Suspect]
     Indication: ANTIPYRESIS
     Dosage: 25 MG/DAY
     Route: 054
     Dates: start: 20090605, end: 20090606

REACTIONS (2)
  - BLOOD PRESSURE DECREASED [None]
  - SHOCK [None]
